FAERS Safety Report 6086237-7 (Version None)
Quarter: 2009Q1

REPORT INFORMATION
  Report Type: 
  Country: None (occurrence: None)
  Receive Date: 20090217
  Receipt Date: 20080902
  Transmission Date: 20090719
  Serious: Yes (Life-Threatening, Other)
  Sender: FDA-Public Use
  Company Number: MC200800367

PATIENT
  Age: 50 Year
  Sex: Male

DRUGS (6)
  1. ANGIOMAX [Suspect]
     Indication: ARTERIOGRAM CORONARY
     Dosage: 15 ML, BOLUS, INTRAVENOUS; 35 ML, HR, INTRAVENOUS
     Route: 042
     Dates: start: 20080410, end: 20080410
  2. ANGIOMAX [Suspect]
     Indication: ARTERIOGRAM CORONARY
     Dosage: 15 ML, BOLUS, INTRAVENOUS; 35 ML, HR, INTRAVENOUS
     Route: 042
     Dates: start: 20080410, end: 20080410
  3. PLAVIX [Concomitant]
  4. VERSED [Concomitant]
  5. FENTANYL-100 [Concomitant]
  6. NITROGLYCERIN [Concomitant]

REACTIONS (1)
  - THROMBOSIS IN DEVICE [None]
